FAERS Safety Report 10257791 (Version 4)
Quarter: 2014Q3

REPORT INFORMATION
  Report Type: Report from Study
  Country: DE (occurrence: None)
  Receive Date: 20140620
  Receipt Date: 20140815
  Transmission Date: 20150326
  Serious: Yes (Hospitalization)
  Sender: FDA-Public Use
  Company Number: 2014DE003376

PATIENT
  Age: 75 Year
  Sex: Female
  Weight: 65 kg

DRUGS (18)
  1. FUROSEMID [Concomitant]
     Active Substance: FUROSEMIDE
  2. PONATINIB [Suspect]
     Active Substance: PONATINIB
     Indication: CHRONIC MYELOID LEUKAEMIA
     Route: 048
     Dates: start: 20110502, end: 20140317
  3. OMEPRAZOL [Concomitant]
     Active Substance: OMEPRAZOLE
  4. ASPIRIN. [Concomitant]
     Active Substance: ASPIRIN
  5. CLOPIDOGREL [Concomitant]
     Active Substance: CLOPIDOGREL BISULFATE
  6. PANTOPRAZOLE [Concomitant]
     Active Substance: PANTOPRAZOLE SODIUM
  7. BISOPROLOL [Concomitant]
     Active Substance: BISOPROLOL
  8. ALLOPURINOL (ALLOPURINOL) [Concomitant]
     Active Substance: ALLOPURINOL
  9. IBUPROFEN. [Concomitant]
     Active Substance: IBUPROFEN
  10. HYDROCHLOROTHIAZIDE. [Concomitant]
     Active Substance: HYDROCHLOROTHIAZIDE
  11. RAMIPRIL (RAMIPRIL) [Concomitant]
     Active Substance: RAMIPRIL
  12. KALINOR-BRAUSETABLETTEN [Concomitant]
     Active Substance: POTASSIUM CARBONATE\POTASSIUM CITRATE
  13. DICLOFENAC [Concomitant]
     Active Substance: DICLOFENAC
  14. VOLTAREN [Concomitant]
     Active Substance: DICLOFENAC SODIUM
  15. TORASEMID [Concomitant]
     Active Substance: TORSEMIDE
  16. OCTENISEPT (OCTENIDINE HYDROCHLORIDE, PHENOXYETHANOL) [Concomitant]
  17. CERTOPARIN SODIUM [Concomitant]
     Active Substance: CERTOPARIN SODIUM
  18. SPIRONOLACTONE (SPIRONOLACTONE) [Concomitant]
     Active Substance: SPIRONOLACTONE

REACTIONS (12)
  - Dry gangrene [None]
  - Pallor [None]
  - Bundle branch block right [None]
  - Tongue coated [None]
  - Erythema [None]
  - Atrioventricular block first degree [None]
  - Oedema peripheral [None]
  - Gangrene [None]
  - Impaired healing [None]
  - Off label use [None]
  - Necrosis [None]
  - Goitre [None]

NARRATIVE: CASE EVENT DATE: 20140414
